FAERS Safety Report 5889518-2 (Version None)
Quarter: 2008Q3

REPORT INFORMATION
  Report Type: 
  Country: None (occurrence: None)
  Receive Date: 20080919
  Receipt Date: 20080910
  Transmission Date: 20090109
  Serious: Yes (Other)
  Sender: FDA-Public Use
  Company Number: US-ALLERGAN-0809646US

PATIENT
  Sex: Female
  Weight: 62.585 kg

DRUGS (4)
  1. RESTASIS [Suspect]
     Indication: DRY EYE
     Dosage: 1 GTT, BID
     Route: 047
     Dates: start: 20080401, end: 20080805
  2. AZMACORT [Concomitant]
     Indication: ASTHMA
     Dosage: 2 PUFFS, QD
     Route: 055
  3. FLONASE [Concomitant]
     Indication: SEASONAL ALLERGY
     Dosage: 1 SPRAY, QD
     Route: 045
  4. ALLEGRA [Concomitant]
     Indication: SEASONAL ALLERGY
     Dosage: UNK, PRN
     Route: 048

REACTIONS (3)
  - ASPERGILLOSIS [None]
  - LARYNGITIS [None]
  - SINUSITIS [None]
